FAERS Safety Report 5950040-6 (Version None)
Quarter: 2008Q4

REPORT INFORMATION
  Report Type: 
  Country: None (occurrence: None)
  Receive Date: 20081112
  Receipt Date: 20081103
  Transmission Date: 20090506
  Serious: Yes (Other)
  Sender: FDA-Public Use
  Company Number: US-ABBOTT-08P-163-0485880-00

PATIENT
  Age: 30 Year
  Sex: Female

DRUGS (4)
  1. RITONAVIR SOFT GELATIN CAPSULES [Suspect]
     Indication: HIV INFECTION
  2. ATAZANAVIR SULFATE [Suspect]
     Indication: HIV INFECTION
  3. ATAZANAVIR SULFATE [Suspect]
  4. EMTRICITABINE [Suspect]
     Indication: HIV INFECTION

REACTIONS (4)
  - CD4 LYMPHOCYTES DECREASED [None]
  - GASTROOESOPHAGEAL REFLUX DISEASE [None]
  - NEPHROLITHIASIS [None]
  - VIRAL LOAD INCREASED [None]
